FAERS Safety Report 21781141 (Version 4)
Quarter: 2023Q4

REPORT INFORMATION
  Report Type: Report from Study
  Country: US (occurrence: US)
  Receive Date: 20221227
  Receipt Date: 20231122
  Transmission Date: 20240109
  Serious: Yes (Hospitalization)
  Sender: FDA-Public Use
  Company Number: US-ABBVIE-4247312

PATIENT
  Age: 53 Year
  Sex: Female

DRUGS (3)
  1. SKYRIZI [Suspect]
     Active Substance: RISANKIZUMAB-RZAA
     Indication: Psoriasis
     Dosage: EVERY 12 WEEKS
     Route: 058
     Dates: start: 20220713, end: 20220713
  2. SKYRIZI [Suspect]
     Active Substance: RISANKIZUMAB-RZAA
     Dosage: WEEK 4
     Route: 058
     Dates: start: 202208, end: 202208
  3. SKYRIZI [Suspect]
     Active Substance: RISANKIZUMAB-RZAA
     Route: 058
     Dates: start: 2022

REACTIONS (13)
  - Kidney infection [Recovered/Resolved]
  - Micturition frequency decreased [Recovered/Resolved]
  - Erythema [Unknown]
  - Malaise [Unknown]
  - Vomiting [Unknown]
  - Therapeutic product effect decreased [Recovering/Resolving]
  - Abdominal pain upper [Unknown]
  - Diabetes mellitus [Recovering/Resolving]
  - Gastrooesophageal reflux disease [Unknown]
  - Skin haemorrhage [Recovering/Resolving]
  - Diarrhoea [Unknown]
  - Urinary tract infection [Recovered/Resolved]
  - Scratch [Recovering/Resolving]

NARRATIVE: CASE EVENT DATE: 20220901
